FAERS Safety Report 4530250-5 (Version None)
Quarter: 2004Q4

REPORT INFORMATION
  Report Type: 
  Country: None (occurrence: None)
  Receive Date: 20041215
  Receipt Date: 20041123
  Transmission Date: 20050328
  Serious: Yes (Death)
  Sender: FDA-Public Use
  Company Number: 2004BI000461

PATIENT
  Age: 55 Year
  Sex: Female
  Weight: 101.6057 kg

DRUGS (3)
  1. AMEVIVE [Suspect]
     Indication: PSORIASIS
     Dosage: 15 MG; QW; IM
     Route: 030
     Dates: start: 20031118
  2. ATENOLOL [Concomitant]
  3. LASIX [Concomitant]

REACTIONS (1)
  - MYOCARDIAL INFARCTION [None]
